FAERS Safety Report 4863314-7 (Version None)
Quarter: 2005Q4

REPORT INFORMATION
  Report Type: 
  Country: None (occurrence: None)
  Receive Date: 20051219
  Receipt Date: 20051219
  Transmission Date: 20060501
  Serious: Yes (Other)
  Sender: FDA-Public Use
  Company Number: None

PATIENT
  Age: 50 Year
  Sex: Female

DRUGS (2)
  1. SEROQUEL [Suspect]
     Dosage: ONE TAB PO QID
     Route: 048
     Dates: start: 20050329, end: 20050403
  2. SEROQUEL [Suspect]
     Dosage: ONE TAB PO QID
     Route: 048
     Dates: start: 20050403

REACTIONS (2)
  - DRUG DISPENSING ERROR [None]
  - MEDICATION ERROR [None]
